FAERS Safety Report 8272223-5 (Version None)
Quarter: 2012Q2

REPORT INFORMATION
  Report Type: 
  Country: None (occurrence: None)
  Receive Date: 20120410
  Receipt Date: 20120406
  Transmission Date: 20120825
  Serious: Yes (Life-Threatening)
  Sender: FDA-Public Use
  Company Number: SE-ASTRAZENECA-2012SE22694

PATIENT
  Age: 40 Year
  Sex: Female

DRUGS (1)
  1. QUETIAPINE [Suspect]
     Indication: SCHIZOPHRENIA
     Route: 048

REACTIONS (7)
  - DEPRESSED LEVEL OF CONSCIOUSNESS [None]
  - COMA SCALE ABNORMAL [None]
  - OVERDOSE [None]
  - HYPOTHERMIA [None]
  - TOXICITY TO VARIOUS AGENTS [None]
  - BLOOD PRESSURE IMMEASURABLE [None]
  - BRADYCARDIA [None]
